FAERS Safety Report 9124855 (Version 1)
Quarter: 2013Q1

REPORT INFORMATION
  Report Type: Report from Study
  Country: CH (occurrence: CH)
  Receive Date: 20130121
  Receipt Date: 20130121
  Transmission Date: 20140127
  Serious: Yes (Hospitalization)
  Sender: FDA-Public Use
  Company Number: CH-BRISTOL-MYERS SQUIBB COMPANY-17177478

PATIENT
  Age: 55 Year
  Sex: Male

DRUGS (5)
  1. CETUXIMAB [Suspect]
     Indication: OESOPHAGEAL ADENOCARCINOMA
     Dosage: RECENT DOSE:450MG:19-NOV-2012
     Route: 042
     Dates: start: 20120910
  2. CISPLATIN FOR INJ [Suspect]
     Indication: OESOPHAGEAL ADENOCARCINOMA
     Dosage: RECENT DOSE:45MG:19-NOV-2012
     Route: 042
     Dates: start: 20120910
  3. DOCETAXEL [Suspect]
     Indication: OESOPHAGEAL ADENOCARCINOMA
     Dosage: RECENT DOSE:35MG:19-NOV-2012
     Route: 042
     Dates: start: 20120910
  4. NEXIUM [Concomitant]
     Route: 048
     Dates: start: 20120917
  5. MAGNESIOCARD [Concomitant]
     Dates: start: 20121119

REACTIONS (3)
  - Dysphagia [Recovered/Resolved]
  - Infection [Recovered/Resolved]
  - Pyrexia [Recovered/Resolved]
